FAERS Safety Report 8114760-X (Version None)
Quarter: 2012Q1

REPORT INFORMATION
  Report Type: 
  Country: None (occurrence: None)
  Receive Date: 20120202
  Receipt Date: 20120202
  Transmission Date: 20120608
  Serious: Yes (Hospitalization)
  Sender: FDA-Public Use
  Company Number: None

PATIENT
  Age: 70 Year
  Sex: Male

DRUGS (1)
  1. LEXISCAN [Suspect]
     Dosage: UNKNOWN 042
     Dates: start: 20110706

REACTIONS (2)
  - THROMBOPHLEBITIS SEPTIC [None]
  - INFUSION SITE REACTION [None]
